FAERS Safety Report 8363692-0 (Version None)
Quarter: 2012Q2

REPORT INFORMATION
  Report Type: 
  Country: None (occurrence: None)
  Receive Date: 20120516
  Receipt Date: 20120504
  Transmission Date: 20120825
  Serious: Yes (Death, Life-Threatening)
  Sender: FDA-Public Use
  Company Number: GB-JNJFOC-20110506475

PATIENT
  Sex: Female
  Weight: 38 kg

DRUGS (2)
  1. REMICADE [Suspect]
     Indication: RHEUMATOID ARTHRITIS
     Route: 042
     Dates: start: 20041101
  2. AZATHIOPRINE [Concomitant]
     Dates: start: 20060720

REACTIONS (1)
  - TRANSITIONAL CELL CARCINOMA METASTATIC [None]
